FAERS Safety Report 16169727 (Version 1)
Quarter: 2019Q2

REPORT INFORMATION
  Report Type: Spontaneous
  Country: US (occurrence: US)
  Receive Date: 20190407
  Receipt Date: 20190407
  Transmission Date: 20190711
  Serious: No
  Sender: FDA-Public Use
  Company Number: None

PATIENT
  Age: 51 Year
  Sex: Female
  Weight: 63 kg

DRUGS (1)
  1. CIPROFLOXACIN HCL 500 MG [Suspect]
     Active Substance: CIPROFLOXACIN HYDROCHLORIDE
     Indication: URINARY TRACT INFECTION FUNGAL
     Dosage: ?          QUANTITY:1 TABLET(S);?
     Route: 048
     Dates: start: 20190323, end: 20190324

REACTIONS (12)
  - Arthralgia [None]
  - Feeling abnormal [None]
  - Pain [None]
  - Head discomfort [None]
  - Pain in extremity [None]
  - Tendon pain [None]
  - Vision blurred [None]
  - Musculoskeletal stiffness [None]
  - Ear discomfort [None]
  - Myalgia [None]
  - Tinnitus [None]
  - Skin sensitisation [None]

NARRATIVE: CASE EVENT DATE: 20190323
